FAERS Safety Report 10501843 (Version 1)
Quarter: 2014Q4

REPORT INFORMATION
  Report Type: Spontaneous
  Country: US (occurrence: US)
  Receive Date: 20141007
  Receipt Date: 20141007
  Transmission Date: 20150528
  Serious: No
  Sender: FDA-Public Use
  Company Number: US-PFIZER INC-2014272766

PATIENT
  Age: 73 Year
  Sex: Female
  Weight: 62.13 kg

DRUGS (1)
  1. DEPO-ESTRADIOL [Suspect]
     Active Substance: ESTRADIOL CYPIONATE
     Indication: HORMONE REPLACEMENT THERAPY
     Dosage: 5 MG, MONTHLY

REACTIONS (1)
  - Pruritus [Not Recovered/Not Resolved]
